FAERS Safety Report 23456211 (Version 1)
Quarter: 2024Q1

REPORT INFORMATION
  Report Type: Spontaneous
  Country: US (occurrence: US)
  Receive Date: 20240130
  Receipt Date: 20240130
  Transmission Date: 20240410
  Serious: Yes (Other)
  Sender: FDA-Public Use
  Company Number: US-HIKMA PHARMACEUTICALS USA INC.-US-H14001-24-00557

PATIENT

DRUGS (7)
  1. ANAKINRA [Suspect]
     Active Substance: ANAKINRA
     Indication: Still^s disease
     Dosage: UNKNOWN
     Route: 065
  2. CYCLOSPORINE [Suspect]
     Active Substance: CYCLOSPORINE
     Indication: Still^s disease
     Dosage: UNKNOWN
     Route: 065
  3. ILARIS [Suspect]
     Active Substance: CANAKINUMAB
     Indication: Still^s disease
     Dosage: 4 MILLIGRAM/KILOGRAM/DOSE
     Route: 065
  4. JAKAFI [Suspect]
     Active Substance: RUXOLITINIB
     Indication: Still^s disease
     Dosage: UNKNOWN
     Route: 065
  5. METHOTREXATE [Suspect]
     Active Substance: METHOTREXATE
     Indication: Still^s disease
     Dosage: UNKNOWN
     Route: 065
  6. PREDNISOLONE [Suspect]
     Active Substance: PREDNISOLONE
     Indication: Still^s disease
     Dosage: UNKNOWN
     Route: 065
  7. TOCILIZUMAB [Suspect]
     Active Substance: TOCILIZUMAB
     Indication: Still^s disease
     Dosage: UNKNOWN
     Route: 065

REACTIONS (8)
  - Glaucoma [Unknown]
  - Platelet count increased [Unknown]
  - Cushingoid [Unknown]
  - Anaemia [Unknown]
  - Pyrexia [Unknown]
  - Polyarthritis [Unknown]
  - Arthralgia [Unknown]
  - Drug ineffective [Unknown]
